FAERS Safety Report 17796647 (Version 4)
Quarter: 2020Q3

REPORT INFORMATION
  Report Type: Report from Study
  Country: EG (occurrence: EG)
  Receive Date: 20200518
  Receipt Date: 20200723
  Transmission Date: 20201102
  Serious: Yes (Other)
  Sender: FDA-Public Use
  Company Number: EG-REGENERON PHARMACEUTICALS, INC.-2020-37849

PATIENT

DRUGS (1)
  1. EYLEA [Suspect]
     Active Substance: AFLIBERCEPT
     Indication: DIABETIC RETINAL OEDEMA
     Dosage: BOTH EYES. THE TOTAL NUMBER OF INJECTION IS 1 IN EACH EYE.
     Route: 031
     Dates: start: 20191001, end: 20191001

REACTIONS (3)
  - Cerebral vascular occlusion [Recovered/Resolved]
  - Inappropriate schedule of product administration [Unknown]
  - Cerebral haematoma [Recovered/Resolved]

NARRATIVE: CASE EVENT DATE: 20191001
